FAERS Safety Report 8502482-2 (Version None)
Quarter: 2012Q3

REPORT INFORMATION
  Report Type: 
  Country: None (occurrence: None)
  Receive Date: 20120711
  Receipt Date: 20120702
  Transmission Date: 20120928
  Serious: Yes (Other)
  Sender: FDA-Public Use
  Company Number: US-BAYER-201040360NA

PATIENT
  Age: 64 Year
  Sex: Female
  Weight: 64 kg

DRUGS (30)
  1. TRASYLOL [Suspect]
     Dosage: 2 MILLION UNIT PUMP PRIME
     Route: 042
  2. FRESH FROZEN PLASMA [Concomitant]
     Dosage: 2 U, UNK
  3. MORPHINE [Concomitant]
  4. CARDIOPLEGIA [Concomitant]
     Dosage: 500 ML, UNK
     Route: 042
     Dates: start: 20060816, end: 20060816
  5. RED BLOOD CELLS [Concomitant]
     Dosage: 5 U, UNK
     Route: 042
  6. OMNIPAQUE 140 [Concomitant]
     Indication: CATHETERISATION CARDIAC
     Dosage: 132 ML, UNK
     Dates: start: 20060811
  7. METHADONE HCL [Concomitant]
  8. RESTORIL [Concomitant]
  9. MIRALAX [Concomitant]
  10. PROTAMINE SULFATE [Concomitant]
     Dosage: 500 MG, UNK
     Dates: start: 20060816, end: 20060816
  11. ATACAND [Concomitant]
  12. PROPOFOL [Concomitant]
  13. LIDOCAINE [Concomitant]
     Dosage: 200 MG, UNK
     Dates: start: 20060816, end: 20060816
  14. ATIVAN [Concomitant]
  15. ZOLOFT [Concomitant]
  16. MIDAZOLAM [Concomitant]
  17. NORMOSOL [Concomitant]
     Dosage: 300 ML, UNK
     Dates: start: 20060816, end: 20060816
  18. MANNITOL [Concomitant]
     Dosage: 25 G, UNK
     Dates: start: 20060816, end: 20060816
  19. PAVULON [Concomitant]
     Dosage: UNK
     Dates: start: 20060816, end: 20060816
  20. ETOMIDATE [Concomitant]
     Dosage: UNK
     Dates: start: 20060816, end: 20060816
  21. LASIX [Concomitant]
     Dosage: 20 MG, UNK
     Dates: start: 20060816, end: 20060816
  22. MILRINONE LACTATE [Concomitant]
     Dosage: UNK
     Dates: start: 20060816, end: 20060816
  23. TRASYLOL [Suspect]
     Indication: CORONARY ARTERY BYPASS
     Dosage: 1 ML, UNK
     Route: 042
     Dates: start: 20060816, end: 20060816
  24. TRASYLOL [Suspect]
     Dosage: 50 ML/HR INFUSION
  25. PLATELETS [Concomitant]
     Dosage: 700 ML, UNK
  26. NORVASC [Concomitant]
  27. LYRICA [Concomitant]
  28. SYNTHROID [Concomitant]
  29. SUFENTANIL CITRATE [Concomitant]
     Dosage: UNK
     Dates: start: 20060816, end: 20060816
  30. HEPARIN [Concomitant]
     Dosage: 10000 U, UNK
     Dates: start: 20060816, end: 20060816

REACTIONS (11)
  - ANXIETY [None]
  - FEAR OF DEATH [None]
  - EMOTIONAL DISTRESS [None]
  - RENAL FAILURE [None]
  - PAIN [None]
  - NERVOUSNESS [None]
  - FEAR [None]
  - MULTI-ORGAN FAILURE [None]
  - RENAL INJURY [None]
  - DEPRESSION [None]
  - INJURY [None]
